FAERS Safety Report 13729322 (Version 3)
Quarter: 2018Q3

REPORT INFORMATION
  Report Type: Spontaneous
  Country: ES (occurrence: ES)
  Receive Date: 20170707
  Receipt Date: 20180827
  Transmission Date: 20181010
  Serious: Yes (Other)
  Sender: FDA-Public Use
  Company Number: ES-CONCORDIA PHARMACEUTICALS INC.-E2B_00008221

PATIENT
  Age: 74 Year
  Sex: Female

DRUGS (19)
  1. CLOBETASOL [Interacting]
     Active Substance: CLOBETASOL
     Route: 061
  2. ENOXAPARIN [Interacting]
     Active Substance: ENOXAPARIN
  3. METHYLPREDNISOLONE ACEPONATE [Interacting]
     Active Substance: METHYLPREDNISOLONE ACEPONATE
     Indication: ERYTHEMA
     Route: 061
  4. FOLIC ACID. [Concomitant]
     Active Substance: FOLIC ACID
  5. DIGOXIN. [Suspect]
     Active Substance: DIGOXIN
     Dosage: 5 DAY  PER WEEK
  6. ACENOCOUMAROL [Interacting]
     Active Substance: ACENOCOUMAROL
  7. BISOPROLOL [Interacting]
     Active Substance: BISOPROLOL
  8. CLORAZEPATE [Interacting]
     Active Substance: CLORAZEPATE DIPOTASSIUM
  9. FUROSEMIDE. [Interacting]
     Active Substance: FUROSEMIDE
  10. HYDROCHLOROTHIAZIDE. [Interacting]
     Active Substance: HYDROCHLOROTHIAZIDE
  11. INSULIN [Concomitant]
     Active Substance: INSULIN NOS
  12. ALPRAZOLAM. [Interacting]
     Active Substance: ALPRAZOLAM
     Indication: DISORIENTATION
  13. HYDROCORTISONE. [Interacting]
     Active Substance: HYDROCORTISONE
     Indication: ERYTHRODERMIC PSORIASIS
     Route: 061
  14. PREDNISONE. [Interacting]
     Active Substance: PREDNISONE
     Indication: ERYTHRODERMIC PSORIASIS
     Route: 048
  15. RAMIPRIL. [Interacting]
     Active Substance: RAMIPRIL
  16. DILTIAZEM. [Interacting]
     Active Substance: DILTIAZEM
  17. METHOTREXATE. [Interacting]
     Active Substance: METHOTREXATE
  18. OMEPRAZOLE. [Interacting]
     Active Substance: OMEPRAZOLE
  19. ALPRAZOLAM. [Interacting]
     Active Substance: ALPRAZOLAM
     Indication: EUPHORIC MOOD

REACTIONS (10)
  - Erythrodermic psoriasis [Recovering/Resolving]
  - Somnolence [Unknown]
  - Drug interaction [Unknown]
  - Condition aggravated [Recovering/Resolving]
  - Toxicity to various agents [Recovering/Resolving]
  - Erythema [Recovering/Resolving]
  - Transaminases increased [Recovering/Resolving]
  - Disorientation [Unknown]
  - Euphoric mood [Unknown]
  - Stupor [Unknown]
